FAERS Safety Report 4582477-4 (Version None)
Quarter: 2005Q1

REPORT INFORMATION
  Report Type: 
  Country: None (occurrence: None)
  Receive Date: 20050211
  Receipt Date: 20050211
  Transmission Date: 20050727
  Serious: Yes (Hospitalization)
  Sender: FDA-Public Use
  Company Number: None

PATIENT
  Age: 30 Year
  Sex: Male

DRUGS (1)
  1. BACTRIM DS [Suspect]
     Dosage: ORAL ; 2;1 DAY(S)
     Route: 048
     Dates: start: 20050119, end: 20050122

REACTIONS (4)
  - HEPATITIS [None]
  - PRURITUS [None]
  - PYREXIA [None]
  - URTICARIA [None]
